FAERS Safety Report 6254058-8 (Version None)
Quarter: 2009Q3

REPORT INFORMATION
  Report Type: 
  Country: None (occurrence: None)
  Receive Date: 20090702
  Receipt Date: 20090623
  Transmission Date: 20100115
  Serious: Yes (Hospitalization)
  Sender: FDA-Public Use
  Company Number: US-JNJFOC-20090607894

PATIENT
  Age: 50 Year
  Sex: Female

DRUGS (10)
  1. RISPERIDONE [Suspect]
     Indication: DRUG USE FOR UNKNOWN INDICATION
     Dosage: AT BEDTIME
     Route: 065
  2. LAMOTRIGINE [Suspect]
     Indication: DRUG USE FOR UNKNOWN INDICATION
     Route: 065
  3. LEVOTHYROXINE SODIUM [Concomitant]
     Route: 065
  4. LITHIUM [Concomitant]
     Route: 065
  5. DILTIAZEM [Concomitant]
     Route: 065
  6. CLONAZEPAM [Concomitant]
     Dosage: 0.5 MG 3 TIMES DAILY AND 1 MG AT BEDTIME
     Route: 065
  7. ZOLPIDEM [Concomitant]
     Dosage: AT BEDTIME
     Route: 065
  8. OXYCODONE [Concomitant]
     Dosage: AS NEEDED
     Route: 065
  9. DIPHENHYDRAMINE HCL [Concomitant]
     Dosage: AS NEEDED
     Route: 065
  10. TYLENOL (CAPLET) [Concomitant]
     Route: 065

REACTIONS (4)
  - DYSPNOEA [None]
  - GASTROENTERITIS [None]
  - MENINGITIS ASEPTIC [None]
  - TACHYCARDIA [None]
